FAERS Safety Report 11771897 (Version 2)
Quarter: 2015Q4

REPORT INFORMATION
  Report Type: Report from Study
  Country: DE (occurrence: DE)
  Receive Date: 20151124
  Receipt Date: 20151218
  Transmission Date: 20160304
  Serious: Yes (Hospitalization)
  Sender: FDA-Public Use
  Company Number: DE-ROCHE-1661691

PATIENT
  Age: 79 Year
  Sex: Female
  Weight: 62 kg

DRUGS (33)
  1. ALENDRONSAEURE [Concomitant]
     Route: 065
     Dates: start: 20061221, end: 20120710
  2. ALENDRONSAEURE [Concomitant]
     Route: 065
     Dates: start: 20131211
  3. RITUXIMAB [Suspect]
     Active Substance: RITUXIMAB
     Indication: NON-HODGKIN^S LYMPHOMA UNSPECIFIED HISTOLOGY INDOLENT
     Dosage: CYCLE 1
     Route: 042
     Dates: start: 20120827, end: 20120827
  4. ZANTAC [Concomitant]
     Active Substance: RANITIDINE HYDROCHLORIDE
     Dosage: 1 AMP.?16/JUL/2013, 10/SEP/2013, 12/NOV/2013, 08/JAN/2014, 05/MAR/2014, 07/MAY/2014, 02/JUL/2014, 22
     Route: 065
     Dates: start: 20130521, end: 20141217
  5. PARACETAMOL [Concomitant]
     Active Substance: ACETAMINOPHEN
     Dosage: 25/SEP/2012, 23/OCT/2012, 27/NOV/2012, 18/DEC/2012, 15/JAN/2013, 19/FEB/2013, 19/MAR/2013, 12/NOV/20
     Route: 065
     Dates: start: 20120828, end: 20120828
  6. VERGENTAN [Concomitant]
     Dosage: 1 AMPULLE
     Route: 065
     Dates: start: 20121024, end: 20121025
  7. VERGENTAN [Concomitant]
     Dosage: 1 AMPULLE
     Route: 065
     Dates: start: 20121128, end: 20121129
  8. VERGENTAN [Concomitant]
     Dosage: 1 AMPULLE
     Route: 065
     Dates: start: 20130320, end: 20130321
  9. OCTAGAM IMMUNE GLOBULIN (HUMAN) [Concomitant]
     Active Substance: HUMAN IMMUNOGLOBULIN G
     Dosage: 10 G EVERY 4 WEEKS
     Route: 065
     Dates: start: 20130423
  10. DEXA-GENTAMICIN [Concomitant]
     Route: 065
     Dates: start: 20121114, end: 20121120
  11. RITUXIMAB [Suspect]
     Active Substance: RITUXIMAB
     Indication: NON-HODGKIN^S LYMPHOMA UNSPECIFIED HISTOLOGY INDOLENT
     Dosage: DATE OF LAST DOSE PRIOR TO SAE: 15/JUL/2015
     Route: 058
     Dates: start: 20120925
  12. SOLU DECORTIN [Concomitant]
     Active Substance: PREDNISOLONE SODIUM SUCCINATE
     Dosage: 16/JUL/2013, 10/SEP/2013, 12/NOV/2013, 08/JAN/2014, 07/MAY/2014, 02/JUL/2014, 27/AUG/2014, 22/OCT/20
     Route: 065
     Dates: start: 20130521, end: 20130521
  13. PACKED RED CELLS [Concomitant]
     Dosage: 2 PACKAGES
     Route: 065
     Dates: start: 20130312, end: 20130313
  14. VANCO [Concomitant]
     Active Substance: VANCOMYCIN
     Route: 065
     Dates: start: 20130129, end: 20130129
  15. SOLU DECORTIN [Concomitant]
     Active Substance: PREDNISOLONE SODIUM SUCCINATE
     Dosage: 25/SEP/2012, 23/OCT/2012, 27/NOV/2012, 18/DEC/2012, 15/JAN/2013, 19/FEB/2013, 19/MAR/2013, 05/MAR/20
     Route: 065
     Dates: start: 20120827, end: 20120828
  16. VERGENTAN [Concomitant]
     Dosage: 1 AMPULLE
     Route: 065
     Dates: start: 20120829, end: 20120830
  17. VERGENTAN [Concomitant]
     Dosage: 1 AMPULLE
     Route: 065
     Dates: start: 20121219, end: 20121220
  18. VERGENTAN [Concomitant]
     Dosage: 1 AMPULLE
     Route: 065
     Dates: start: 20130116, end: 20130117
  19. VERGENTAN [Concomitant]
     Dosage: 1 AMPULLE
     Route: 065
     Dates: start: 20130220, end: 20130221
  20. FILGRASTIM [Concomitant]
     Active Substance: FILGRASTIM
     Dosage: 30 MILL
     Route: 065
     Dates: start: 20130226, end: 20130302
  21. VERGENTAN [Concomitant]
     Dosage: 1 AMPULLE
     Route: 065
     Dates: start: 20120926, end: 20120927
  22. BENDAMUSTINE [Concomitant]
     Active Substance: BENDAMUSTINE
     Route: 065
     Dates: start: 20130220, end: 20130221
  23. LOPERAMID [Concomitant]
     Active Substance: LOPERAMIDE
     Dosage: 1 TABLET
     Route: 065
     Dates: start: 20131029, end: 20131029
  24. APREPITANT. [Concomitant]
     Active Substance: APREPITANT
     Route: 065
     Dates: start: 20131029, end: 20131029
  25. APREPITANT. [Concomitant]
     Active Substance: APREPITANT
     Route: 065
     Dates: start: 20131101, end: 20131101
  26. LOPERAMID [Concomitant]
     Active Substance: LOPERAMIDE
     Route: 065
     Dates: start: 20130416, end: 20130418
  27. MERONEM [Concomitant]
     Active Substance: MEROPENEM
     Route: 065
     Dates: start: 20130722, end: 20130801
  28. TAVEGIL [Concomitant]
     Active Substance: CLEMASTINE FUMARATE
     Dosage: 1 AMP.?05/MAR/2014, 07/MAY/2014,02/JUL/2014, 27/AUG/2014, 22/OCT/2014, 17/DEC/2014, 17/FEB/2015, 13/
     Route: 065
     Dates: start: 20140108, end: 20140108
  29. ZANTAC [Concomitant]
     Active Substance: RANITIDINE HYDROCHLORIDE
     Dosage: 25/SEP/2012, 23/OCT/2012, 27/NOV/2012, 18/DEC/2012, 15/JAN/2013, 19/FEB/2013, 19/MAR/2013
     Route: 065
     Dates: start: 20120827, end: 20120828
  30. MIRFULAN [Concomitant]
     Route: 065
     Dates: start: 20130104, end: 20130111
  31. BENDAMUSTINE [Concomitant]
     Active Substance: BENDAMUSTINE
     Route: 065
     Dates: start: 20130320, end: 20130321
  32. PORT IMPLANTATION [Concomitant]
     Route: 065
     Dates: start: 20130129, end: 20130129
  33. EMEND [Concomitant]
     Active Substance: APREPITANT
     Route: 065
     Dates: start: 20131029, end: 20131029

REACTIONS (1)
  - Cardiac failure [Recovered/Resolved]

NARRATIVE: CASE EVENT DATE: 20150907
